FAERS Safety Report 21365989 (Version 1)
Quarter: 2022Q3

REPORT INFORMATION
  Report Type: Spontaneous
  Country: ES (occurrence: ES)
  Receive Date: 20220922
  Receipt Date: 20220922
  Transmission Date: 20221027
  Serious: Yes (Death)
  Sender: FDA-Public Use
  Company Number: None

PATIENT
  Age: 39 Year
  Sex: Male

DRUGS (7)
  1. LINEZOLID [Suspect]
     Active Substance: LINEZOLID
     Indication: Pneumonia
     Dosage: 600MG EACH 12, LINEZOLID (1279A), UNIT DOSE: 600 MG, FREQUENCY TIME- 12 HRS, DURATION-2 DAYS
     Dates: start: 20220818, end: 20220819
  2. ACETAMINOPHEN [Suspect]
     Active Substance: ACETAMINOPHEN
     Indication: Pyrexia
     Dosage: PARACETAMOL (12A), DURATION-2 DAYS
     Route: 065
     Dates: start: 20220818, end: 20220819
  3. MEROPENEM [Suspect]
     Active Substance: MEROPENEM
     Indication: Pneumonia
     Dosage: EVERY 8H, 1000MG, UNIT DOSE:1 G, FREQUENCY TIME- 8 HRS,
     Dates: start: 20220818
  4. TECLISTAMAB [Suspect]
     Active Substance: TECLISTAMAB
     Indication: Plasma cell myeloma refractory
     Dosage: TECLISTAMAB (30933A), DURATION-50 DAYS
     Dates: start: 20220624, end: 20220812
  5. DEXAMETHASONE [Suspect]
     Active Substance: DEXAMETHASONE
     Indication: COVID-19
     Dosage: 6 MILLIGRAM DAILY; 6MG EVERY 24H, 4 MG INJECTION 1 ML 1 VIAL, DURATION-2 DAYS
     Dates: start: 20220818, end: 20220819
  6. ENOXAPARIN SODIUM [Suspect]
     Active Substance: ENOXAPARIN SODIUM
     Indication: Prophylaxis
     Dosage: 40 MILLIGRAM DAILY; 1 EVERY 24H, 40 MG (4,000 IU) INJECTION 0.4 ML 1 ML 1 VIAL
     Dates: start: 20220818
  7. TOCILIZUMAB [Suspect]
     Active Substance: TOCILIZUMAB
     Indication: COVID-19
     Dosage: 600MG SINGLE DOSE,  FORM STRENGTH 20 MG/ML, FREQUENCY TIME- 1 TOTAL, DURATION-1 DAYS
     Dates: start: 20220818, end: 20220818

REACTIONS (1)
  - Hepatitis fulminant [Fatal]

NARRATIVE: CASE EVENT DATE: 20220819
